FAERS Safety Report 15679693 (Version 4)
Quarter: 2019Q2

REPORT INFORMATION
  Report Type: Spontaneous
  Country: DE (occurrence: DE)
  Receive Date: 20181203
  Receipt Date: 20190419
  Transmission Date: 20190711
  Serious: Yes (Hospitalization)
  Sender: FDA-Public Use
  Company Number: DE-PFIZER INC-2018496197

PATIENT
  Age: 72 Year
  Sex: Male
  Weight: 95 kg

DRUGS (14)
  1. BISOPROLOL FUMARATE. [Suspect]
     Active Substance: BISOPROLOL FUMARATE
     Indication: HYPERTENSION
     Dosage: 10 MG, QD
     Route: 048
     Dates: start: 2012
  2. DACEPTON [Suspect]
     Active Substance: APOMORPHINE HYDROCHLORIDE
     Dosage: 124 MG, DAILY(00:00-23:59)
     Dates: start: 20160722
  3. DACEPTON [Suspect]
     Active Substance: APOMORPHINE HYDROCHLORIDE
     Dosage: 101.5 MG, DAILY
  4. MULTAQ [Suspect]
     Active Substance: DRONEDARONE
     Dosage: 800 MG, QD
     Route: 065
     Dates: start: 20170122, end: 20170126
  5. DACEPTON [Suspect]
     Active Substance: APOMORPHINE HYDROCHLORIDE
     Indication: PARKINSON^S DISEASE
     Dosage: 84.5 MG, DAILY(FROM 07.00 TO 22.00 HRS)
     Route: 058
     Dates: start: 20160721
  6. MADOPAR LT [Suspect]
     Active Substance: BENSERAZIDE HYDROCHLORIDE\LEVODOPA
     Indication: PARKINSON^S DISEASE
     Dosage: UNK UNK, QD
     Route: 048
     Dates: start: 2010, end: 20170315
  7. LEVOCOMP [Suspect]
     Active Substance: CARBIDOPA\LEVODOPA
     Indication: PARKINSON^S DISEASE
     Dosage: 200 MILLIGRAM, QD
     Route: 048
     Dates: end: 20170330
  8. ONGENTYS [Concomitant]
     Active Substance: OPICAPONE
     Dosage: 50 MG, QD
  9. ALIUD [XYLOMETAZOLINE] [Suspect]
     Active Substance: XYLOMETAZOLINE
     Dosage: UNK
     Route: 045
  10. CARDIODORON B [Suspect]
     Active Substance: HERBALS
     Dosage: UNK
     Route: 048
     Dates: start: 2010, end: 20170131
  11. RIVOTRIL [Suspect]
     Active Substance: CLONAZEPAM
     Dosage: 0.5 MG, QD
     Route: 048
     Dates: start: 2010
  12. PANTOPRAZOLE [Suspect]
     Active Substance: PANTOPRAZOLE
     Dosage: 80 MG, QD
     Route: 048
     Dates: start: 2013, end: 20170213
  13. APO-GO [Suspect]
     Active Substance: APOMORPHINE
     Indication: PARKINSON^S DISEASE
     Dosage: 5 MG, QD
     Route: 058
     Dates: start: 2013, end: 20170315
  14. MADOPAR LT [Suspect]
     Active Substance: BENSERAZIDE HYDROCHLORIDE\LEVODOPA
     Dosage: UNK
     Route: 048
     Dates: start: 2013

REACTIONS (6)
  - Arrhythmia [Unknown]
  - Dyspnoea [Unknown]
  - Oral discomfort [Unknown]
  - Nodule [Unknown]
  - Tooth loss [Unknown]
  - Hallucination [Not Recovered/Not Resolved]

NARRATIVE: CASE EVENT DATE: 20170125
